FAERS Safety Report 14654023 (Version 2)
Quarter: 2018Q1

REPORT INFORMATION
  Report Type: Spontaneous
  Country: US (occurrence: US)
  Receive Date: 20180319
  Receipt Date: 20180326
  Transmission Date: 20180509
  Serious: No
  Sender: FDA-Public Use
  Company Number: US-PFIZER INC-2017192486

PATIENT
  Age: 16 Year
  Sex: Male

DRUGS (2)
  1. GENOTROPIN [Suspect]
     Active Substance: SOMATROPIN
     Indication: GROWTH HORMONE DEFICIENCY
     Dosage: 2.8 MG, DAILY
     Dates: start: 20170424
  2. GENOTROPIN [Suspect]
     Active Substance: SOMATROPIN
     Dosage: 2.8 MG, DAILY
     Route: 058

REACTIONS (3)
  - Drug dose omission [Unknown]
  - Gastrointestinal infection [Unknown]
  - Vomiting [Unknown]
